FAERS Safety Report 8068992-X (Version None)
Quarter: 2012Q1

REPORT INFORMATION
  Report Type: 
  Country: None (occurrence: None)
  Receive Date: 20120118
  Receipt Date: 20120113
  Transmission Date: 20120608
  Serious: Yes (Other)
  Sender: FDA-Public Use
  Company Number: 2011SP058356

PATIENT
  Sex: Female

DRUGS (5)
  1. MENOGON [Concomitant]
  2. FOLIC ACID [Concomitant]
  3. GANIRELIX ACETATE INJECTION [Suspect]
     Indication: ASSISTED FERTILISATION
     Dates: start: 20111214, end: 20111214
  4. SERETIDE [Concomitant]
  5. THYROXIN [Concomitant]

REACTIONS (2)
  - INJECTION SITE SWELLING [None]
  - ANAPHYLACTIC SHOCK [None]
